FAERS Safety Report 24055717 (Version 1)
Quarter: 2024Q3

REPORT INFORMATION
  Report Type: Spontaneous
  Country: EG (occurrence: EG)
  Receive Date: 20240705
  Receipt Date: 20240705
  Transmission Date: 20241016
  Serious: Yes (Other)
  Sender: JOHNSON AND JOHNSON
  Company Number: EG-JNJFOC-20240712378

PATIENT
  Age: 40 Year
  Sex: Female
  Weight: 100 kg

DRUGS (1)
  1. REMICADE [Suspect]
     Active Substance: INFLIXIMAB
     Indication: Crohn^s disease
     Dosage: PATIENT WAS ADMINISTERED REMICADE 100 MG VIAL BY IV INFUSIONS WITH A DOSE OF 3 VIALS EVERY 2 MONTHS.
     Route: 041
     Dates: start: 20220601, end: 20240601

REACTIONS (1)
  - Large intestine benign neoplasm [Unknown]

NARRATIVE: CASE EVENT DATE: 20240601
